FAERS Safety Report 8251727-5 (Version None)
Quarter: 2012Q2

REPORT INFORMATION
  Report Type: 
  Country: None (occurrence: None)
  Receive Date: 20120402
  Receipt Date: 20120326
  Transmission Date: 20120825
  Serious: Yes (Other)
  Sender: FDA-Public Use
  Company Number: US-US-EMD SERONO, INC.-7121865

PATIENT
  Sex: Female

DRUGS (2)
  1. REBIF [Suspect]
     Indication: PRODUCT USED FOR UNKNOWN INDICATION
     Dates: start: 20100128
  2. INSULIN PUMP [Concomitant]
     Indication: TYPE 1 DIABETES MELLITUS

REACTIONS (2)
  - OSTEOMYELITIS [None]
  - WOUND COMPLICATION [None]
